FAERS Safety Report 9417282 (Version 1)
Quarter: 2013Q3

REPORT INFORMATION
  Report Type: Spontaneous
  Country: US (occurrence: US)
  Receive Date: 20130724
  Receipt Date: 20130724
  Transmission Date: 20140515
  Serious: No
  Sender: FDA-Public Use
  Company Number: US-BRISTOL-MYERS SQUIBB COMPANY-19043728

PATIENT
  Age: 79 Year
  Sex: Female
  Weight: 79.36 kg

DRUGS (8)
  1. ELIQUIS [Suspect]
     Indication: ATRIAL FIBRILLATION
     Dates: start: 201303
  2. ATENOLOL [Concomitant]
  3. BACLOFEN [Concomitant]
  4. CRESTOR [Concomitant]
  5. LASIX [Concomitant]
  6. GABAPENTIN [Concomitant]
     Dosage: 300MG AM AND 600MG PM
  7. METFORMIN [Concomitant]
  8. SLOW-MAG [Concomitant]

REACTIONS (1)
  - Osteoarthritis [Unknown]
